FAERS Safety Report 5134167-7 (Version None)
Quarter: 2006Q4

REPORT INFORMATION
  Report Type: 
  Country: None (occurrence: None)
  Receive Date: 20061024
  Receipt Date: 20061017
  Transmission Date: 20070319
  Serious: Yes (Other)
  Sender: FDA-Public Use
  Company Number: JP-BOEHRINGER INGELHEIM PHARMACEUTICALS, INC.-2006-DE-05459GD

PATIENT
  Age: 69 Year
  Sex: Female

DRUGS (8)
  1. PRAMIPEXOLE DIHYDROCHLORIDE [Suspect]
     Indication: PARKINSON'S DISEASE
  2. PRAMIPEXOLE DIHYDROCHLORIDE [Suspect]
     Indication: POSTURE ABNORMAL
  3. L-DOPA [Suspect]
     Indication: PARKINSON'S DISEASE
  4. L-DOPA [Suspect]
     Indication: POSTURE ABNORMAL
  5. SELEGILINE HCL [Suspect]
     Indication: PARKINSON'S DISEASE
  6. SELEGILINE HCL [Suspect]
     Indication: POSTURE ABNORMAL
  7. CABERGOLINE [Suspect]
     Indication: PARKINSON'S DISEASE
  8. CABERGOLINE [Suspect]
     Indication: POSTURE ABNORMAL

REACTIONS (2)
  - DRUG INEFFECTIVE [None]
  - GAIT DISTURBANCE [None]
